FAERS Safety Report 8998010 (Version 1)
Quarter: 2013Q1

REPORT INFORMATION
  Report Type: Not Available
  Country: CN (occurrence: CN)
  Receive Date: 20130104
  Receipt Date: 20130104
  Transmission Date: 20140127
  Serious: Yes (Other)
  Sender: FDA-Public Use
  Company Number: CN-NAPPMUNDI-DEU-2012-0010217

PATIENT
  Age: 67 Year
  Sex: Male
  Weight: 60 kg

DRUGS (2)
  1. MS CONTIN TABLETS [Suspect]
     Indication: PRODUCT USED FOR UNKNOWN INDICATION
     Dosage: 30 MG, DAILY
     Route: 048
     Dates: start: 20090416, end: 20090416
  2. NOVOLIN R [Concomitant]
     Indication: DIABETES MELLITUS

REACTIONS (1)
  - Hypoglycaemia [Recovering/Resolving]
